FAERS Safety Report 14198550 (Version 2)
Quarter: 2018Q4

REPORT INFORMATION
  Report Type: Spontaneous
  Country: US (occurrence: US)
  Receive Date: 20171117
  Receipt Date: 20181217
  Transmission Date: 20190204
  Serious: No
  Sender: FDA-Public Use
  Company Number: US-GLENMARK PHARMACEUTICALS-2017GMK029318

PATIENT

DRUGS (1)
  1. NYSTATIN AND TRIAMCINOLONE ACETONIDE [Suspect]
     Active Substance: NYSTATIN\TRIAMCINOLONE ACETONIDE
     Indication: SKIN LESION
     Dosage: UNK
     Route: 061

REACTIONS (3)
  - Product label issue [Unknown]
  - Drug effective for unapproved indication [Unknown]
  - Wrong technique in product usage process [Unknown]
